FAERS Safety Report 16269947 (Version 1)
Quarter: 2019Q2

REPORT INFORMATION
  Report Type: Spontaneous
  Country: US (occurrence: US)
  Receive Date: 20190503
  Receipt Date: 20190503
  Transmission Date: 20190711
  Serious: No
  Sender: FDA-Public Use
  Company Number: US-009507513-1904USA011386

PATIENT
  Sex: Female

DRUGS (1)
  1. NEXPLANON [Suspect]
     Active Substance: ETONOGESTREL
     Indication: CONTRACEPTION
     Dosage: 1 IMPLANT
     Route: 059
     Dates: start: 20190412

REACTIONS (5)
  - Implant site rash [Unknown]
  - Infectious mononucleosis [Unknown]
  - Implant site warmth [Unknown]
  - Malaise [Unknown]
  - Rash generalised [Unknown]

NARRATIVE: CASE EVENT DATE: 20190419
